FAERS Safety Report 16201810 (Version 1)
Quarter: 2019Q2

REPORT INFORMATION
  Report Type: Spontaneous
  Country: ZA (occurrence: ZA)
  Receive Date: 20190416
  Receipt Date: 20190416
  Transmission Date: 20190711
  Serious: Yes (Death, Life-Threatening, Hospitalization, Other)
  Sender: FDA-Public Use
  Company Number: ZA-MACLEODS PHARMACEUTICALS US LTD-MAC2017004377

PATIENT

DRUGS (1)
  1. METFORMIN HYDROCHLORIDE. [Suspect]
     Active Substance: METFORMIN HYDROCHLORIDE
     Indication: PRODUCT USED FOR UNKNOWN INDICATION
     Dosage: OVERDOSE (FULL PACK)
     Route: 048
     Dates: start: 20150412

REACTIONS (12)
  - Abdominal pain [Fatal]
  - Condition aggravated [Fatal]
  - Metabolic acidosis [Fatal]
  - Electrocardiogram QT prolonged [Fatal]
  - Tachypnoea [Fatal]
  - Hypoglycaemia [Fatal]
  - Blood creatinine increased [Fatal]
  - Cardiac arrest [Fatal]
  - Intentional overdose [Fatal]
  - Restlessness [Fatal]
  - Coma scale abnormal [Fatal]
  - Hypotension [Fatal]

NARRATIVE: CASE EVENT DATE: 20150412
